FAERS Safety Report 5192469-2 (Version None)
Quarter: 2006Q4

REPORT INFORMATION
  Report Type: 
  Country: None (occurrence: None)
  Receive Date: 20061220
  Receipt Date: 20061204
  Transmission Date: 20070319
  Serious: Yes (Hospitalization)
  Sender: FDA-Public Use
  Company Number: 2006002288

PATIENT
  Sex: Female

DRUGS (6)
  1. TARCEVA [Suspect]
     Indication: DRUG USE FOR UNKNOWN INDICATION
     Dosage: 150 MG, ORAL
     Route: 048
     Dates: start: 20061026, end: 20061125
  2. ALBUTEROL [Concomitant]
  3. PROTONIX [Concomitant]
  4. LASIX [Concomitant]
  5. AMOXICILLIN [Concomitant]
  6. MORPHINE [Concomitant]

REACTIONS (3)
  - ALOPECIA [None]
  - INTERSTITIAL LUNG DISEASE [None]
  - PNEUMONIA [None]
